FAERS Safety Report 24087048 (Version 1)
Quarter: 2024Q3

REPORT INFORMATION
  Report Type: Spontaneous
  Country: GB (occurrence: GB)
  Receive Date: 20240713
  Receipt Date: 20240713
  Transmission Date: 20241016
  Serious: Yes (Death, Life-Threatening, Hospitalization, Other)
  Sender: AUROBINDO
  Company Number: GB-TEVA-2023-GB-2901265

PATIENT
  Age: 5 Year
  Sex: Female

DRUGS (7)
  1. FLUCONAZOLE [Suspect]
     Active Substance: FLUCONAZOLE
     Indication: Mucormycosis
     Dosage: UNK(DOSAGE TEXT:  NUMBER OF SEPARATE DOSES:)
     Route: 065
  2. FLUCONAZOLE [Suspect]
     Active Substance: FLUCONAZOLE
     Indication: Disseminated mucormycosis
  3. VORICONAZOLE [Suspect]
     Active Substance: VORICONAZOLE
     Indication: Disseminated mucormycosis
     Dosage: UNK(DOSAGE TEXT:  NUMBER OF SEPARATE DOSES:)
     Route: 065
  4. VORICONAZOLE [Suspect]
     Active Substance: VORICONAZOLE
     Indication: Mucormycosis
  5. AMPHOTERICIN B [Suspect]
     Active Substance: AMPHOTERICIN B
     Indication: Mucormycosis
     Dosage: UNK(DOSAGE TEXT:  NUMBER OF SEPARATE DOSES:)
     Route: 065
  6. AMPHOTERICIN B [Suspect]
     Active Substance: AMPHOTERICIN B
     Indication: Disseminated mucormycosis
  7. METHOTREXATE [Suspect]
     Active Substance: METHOTREXATE
     Indication: Rheumatic disorder
     Dosage: UNK(DOSAGE TEXT:  NUMBER OF SEPARATE DOSES:)
     Route: 065

REACTIONS (7)
  - Disseminated mucormycosis [Fatal]
  - Mucormycosis [Not Recovered/Not Resolved]
  - Drug ineffective [Not Recovered/Not Resolved]
  - Hypertension [Not Recovered/Not Resolved]
  - Shock [Unknown]
  - Neutropenic sepsis [Unknown]
  - Multiple organ dysfunction syndrome [Unknown]
